FAERS Safety Report 5954404-6 (Version None)
Quarter: 2008Q4

REPORT INFORMATION
  Report Type: 
  Country: None (occurrence: None)
  Receive Date: 20081113
  Receipt Date: 20081113
  Transmission Date: 20090506
  Serious: Yes (Other)
  Sender: FDA-Public Use
  Company Number: None

PATIENT
  Age: 26 Year
  Sex: Female
  Weight: 54.4316 kg

DRUGS (2)
  1. LEVAQUIN [Suspect]
     Indication: KIDNEY INFECTION
     Dosage: 500MG ONCE A DAY, 9 DAYS PO
     Route: 048
     Dates: start: 20081027, end: 20081104
  2. LEVAQUIN [Suspect]
     Indication: URINARY TRACT INFECTION
     Dosage: 500MG ONCE A DAY, 9 DAYS PO
     Route: 048
     Dates: start: 20081027, end: 20081104

REACTIONS (5)
  - ARTHRALGIA [None]
  - BACK PAIN [None]
  - MUSCULOSKELETAL PAIN [None]
  - MUSCULOSKELETAL STIFFNESS [None]
  - PAIN IN EXTREMITY [None]
